FAERS Safety Report 22086288 (Version 4)
Quarter: 2023Q2

REPORT INFORMATION
  Report Type: Report from Study
  Country: US (occurrence: US)
  Receive Date: 20230310
  Receipt Date: 20230628
  Transmission Date: 20230721
  Serious: Yes (Other)
  Sender: FDA-Public Use
  Company Number: US-BIOGEN-2023BI01191844

PATIENT
  Sex: Female

DRUGS (1)
  1. TYSABRI [Suspect]
     Active Substance: NATALIZUMAB
     Indication: Multiple sclerosis
     Route: 050
     Dates: start: 20140307

REACTIONS (6)
  - Chronic kidney disease [Not Recovered/Not Resolved]
  - Graves^ disease [Not Recovered/Not Resolved]
  - Renal neoplasm [Unknown]
  - Goitre [Unknown]
  - Hepatic cyst [Unknown]
  - Vomiting [Unknown]
